FAERS Safety Report 19294492 (Version 1)
Quarter: 2021Q2

REPORT INFORMATION
  Report Type: Spontaneous
  Country: US (occurrence: US)
  Receive Date: 20210524
  Receipt Date: 20210524
  Transmission Date: 20210717
  Serious: Yes (Other)
  Sender: FDA-Public Use
  Company Number: None

PATIENT
  Age: 67 Year
  Sex: Female
  Weight: 56.7 kg

DRUGS (4)
  1. CALCIUM [Concomitant]
     Active Substance: CALCIUM
  2. BRILINTA [Suspect]
     Active Substance: TICAGRELOR
     Indication: MYOCARDIAL INFARCTION
     Dosage: ?          QUANTITY:1 TAB;?
     Route: 048
     Dates: start: 20210331, end: 202104
  3. EDRECOLOMAB. [Concomitant]
     Active Substance: EDRECOLOMAB
  4. D?3 [Concomitant]
     Active Substance: CHOLECALCIFEROL

REACTIONS (3)
  - Panic attack [None]
  - Dyspnoea [None]
  - Anxiety [None]

NARRATIVE: CASE EVENT DATE: 202104
